FAERS Safety Report 6463590-3 (Version None)
Quarter: 2009Q4

REPORT INFORMATION
  Report Type: 
  Country: None (occurrence: None)
  Receive Date: 20091130
  Receipt Date: 20091130
  Transmission Date: 20100525
  Serious: Yes (Other)
  Sender: FDA-Public Use
  Company Number: None

PATIENT
  Sex: Male
  Weight: 3.4 kg

DRUGS (2)
  1. GENTAMYCIN SULFATE [Suspect]
     Indication: OPHTHALMIA NEONATORUM
     Dosage: SMALL AMOUNT TO EYELIDS ONCE AT BIRTH OPHTHALMIC  ONE DOSE ONLY
     Route: 047
     Dates: start: 20091112, end: 20091112
  2. GENTAMYCIN SULFATE [Suspect]
     Indication: PROPHYLAXIS
     Dosage: SMALL AMOUNT TO EYELIDS ONCE AT BIRTH OPHTHALMIC  ONE DOSE ONLY
     Route: 047
     Dates: start: 20091112, end: 20091112

REACTIONS (4)
  - APPLICATION SITE ERYTHEMA [None]
  - APPLICATION SITE SCAB [None]
  - APPLICATION SITE VESICLES [None]
  - BLEPHARITIS [None]
